FAERS Safety Report 12961303 (Version 8)
Quarter: 2019Q3

REPORT INFORMATION
  Report Type: Spontaneous
  Country: US (occurrence: US)
  Receive Date: 20161121
  Receipt Date: 20190726
  Transmission Date: 20191004
  Serious: Yes (Other)
  Sender: FDA-Public Use
  Company Number: US-PFIZER INC-2016532701

PATIENT
  Age: 53 Year
  Sex: Female
  Weight: 91 kg

DRUGS (31)
  1. LYRICA [Suspect]
     Active Substance: PREGABALIN
     Dosage: 450 MG, UNK
     Dates: start: 20190323
  2. TRINTELLIX [Concomitant]
     Active Substance: VORTIOXETINE HYDROBROMIDE
     Indication: DEPRESSION
     Dosage: 10 MG, 1X/DAY
  3. PROAIR HFA [Concomitant]
     Active Substance: ALBUTEROL SULFATE
     Indication: WHEEZING
     Dosage: UNK UNK, AS NEEDED (90 MCG/INH, 2 PUFF Q4 PRN)
     Route: 055
  4. ZOFRAN [Concomitant]
     Active Substance: ONDANSETRON HYDROCHLORIDE
     Dosage: 8 MG, AS NEEDED
     Route: 048
  5. ALPRAZOLAM. [Concomitant]
     Active Substance: ALPRAZOLAM
     Dosage: 0.5 MG, AS NEEDED (TAKE 1 PO Q6 PRN)
     Route: 048
  6. CURCUMIN [Concomitant]
     Active Substance: CURCUMIN
     Indication: INFLAMMATION
     Dosage: 500 MG, 2X/DAY
     Route: 048
  7. LYRICA [Suspect]
     Active Substance: PREGABALIN
     Dosage: 150 MG, 3X/DAY
     Route: 048
     Dates: start: 20180227
  8. BYDUREON [Concomitant]
     Active Substance: EXENATIDE
     Indication: DIABETES MELLITUS
     Dosage: 2 MG, WEEKLY
  9. ASPIRIN 81 [Concomitant]
     Active Substance: ASPIRIN
     Indication: CARDIOVASCULAR EVENT PROPHYLAXIS
     Dosage: 81 MG, 1X/DAY
     Route: 048
  10. ATORVASTATIN [Concomitant]
     Active Substance: ATORVASTATIN
     Indication: BLOOD CHOLESTEROL ABNORMAL
     Dosage: 40 MG, 1X/DAY
     Route: 048
  11. CLONAZEPAM. [Concomitant]
     Active Substance: CLONAZEPAM
     Dosage: 2 MG, 1X/DAY
     Route: 048
  12. EPIPEN [Concomitant]
     Active Substance: EPINEPHRINE
     Indication: HYPERSENSITIVITY
     Dosage: 0.3 MG, UNK
  13. FENTANYL. [Concomitant]
     Active Substance: FENTANYL
     Indication: FIBROMYALGIA
     Dosage: UNK(50 MCG/HR TRANSDERMAL FILM, EXTENDED RELEASE, APPLY 1 PATCH Q3 DAYS)
  14. LISINOPRIL. [Concomitant]
     Active Substance: LISINOPRIL
     Indication: BLOOD PRESSURE ABNORMAL
     Dosage: 10 MG, 1X/DAY
     Route: 048
  15. XANAX [Concomitant]
     Active Substance: ALPRAZOLAM
     Indication: ANXIETY DISORDER
     Dosage: 0.5 MG, 4X/DAY, AS NEEDED
  16. BYDUREON BCISE [Concomitant]
     Active Substance: EXENATIDE
     Dosage: UNK(2 MG/0.85 ML SUBCUTANEOUS SUSPENSION, EXTENDED RELEASE, ADMINISTER XL WEEKLY)
  17. CARBIDOPA LEVODOPA [Concomitant]
     Active Substance: CARBIDOPA\LEVODOPA
     Indication: RESTLESS LEGS SYNDROME
     Dosage: UNK, 2X/DAY (25 MG-100 MG ORAL TABLET, TAKE 1 PO BID)
     Route: 048
  18. VITAMIN D3 [Concomitant]
     Active Substance: CHOLECALCIFEROL
     Dosage: 50000 IU, UNK(50,000 INTL UNITS ORAL CAPSULE, TAKE 1 PO Q MONDAY)
     Route: 048
  19. LYRICA [Suspect]
     Active Substance: PREGABALIN
     Indication: FIBROMYALGIA
     Dosage: 300 MG, 2X/DAY
     Dates: start: 2006
  20. IBUPROFEN. [Concomitant]
     Active Substance: IBUPROFEN
     Indication: PAIN
     Dosage: 800 MG, AS NEEDED(TAKE 1 PO TID PRN)
     Route: 048
  21. TIZANIDINE. [Concomitant]
     Active Substance: TIZANIDINE
     Indication: SLEEP DISORDER
     Dosage: 2 MG, AS NEEDED(2 MG ORAL TABLET, TAKE 1 PO QHS PRN)
     Route: 048
  22. LYRICA [Suspect]
     Active Substance: PREGABALIN
     Dosage: UNK, 1X/DAY
  23. CLARITIN [CLARITHROMYCIN] [Concomitant]
     Active Substance: CLARITHROMYCIN
     Dosage: 10 MG, 1X/DAY
     Route: 048
  24. RITALIN [Concomitant]
     Active Substance: METHYLPHENIDATE HYDROCHLORIDE
     Dosage: 20 MG, 2X/DAY
     Route: 048
  25. TRAZODONE [Concomitant]
     Active Substance: TRAZODONE HYDROCHLORIDE
     Dosage: UNK UNK, AS NEEDED (TRAZODONE 150 MG ORAL TABLET, TAKE 1-2 PO QHS PRN)
     Route: 048
  26. OMEPRAZOLE. [Concomitant]
     Active Substance: OMEPRAZOLE
     Indication: GASTROOESOPHAGEAL REFLUX DISEASE
     Dosage: 40 MG, 1X/DAY
  27. VIIBRYD [Concomitant]
     Active Substance: VILAZODONE HYDROCHLORIDE
     Indication: AFFECTIVE DISORDER
     Dosage: 40 MG, 1X/DAY
     Route: 048
  28. FLONASE [Concomitant]
     Active Substance: FLUTICASONE PROPIONATE
     Indication: DRUG HYPERSENSITIVITY
     Dosage: UNK, 1X/DAY(INS 2 SPRAYS IN EACH NOSTRIL QD)
     Route: 055
  29. PROAIR HFA [Concomitant]
     Active Substance: ALBUTEROL SULFATE
     Indication: DYSPNOEA
  30. RELPAX [Concomitant]
     Active Substance: ELETRIPTAN HYDROBROMIDE
     Dosage: 40 MG, UNK(40 MG ORAL TABLET, TAKE 1 TAB AT HA ONSET THEN 1 TAB 2 HRS LATER)
     Route: 048
  31. TRIAMCINOLONE [Concomitant]
     Active Substance: TRIAMCINOLONE
     Indication: ECZEMA
     Dosage: UNK UNK, AS NEEDED
     Route: 061

REACTIONS (18)
  - Withdrawal syndrome [Recovered/Resolved]
  - Arthropathy [Unknown]
  - Swelling [Unknown]
  - Movement disorder [Unknown]
  - Burning sensation [Unknown]
  - Chills [Recovering/Resolving]
  - Intentional product misuse [Unknown]
  - Quality of life decreased [Unknown]
  - Diarrhoea [Unknown]
  - Contusion [Unknown]
  - Tearfulness [Unknown]
  - Malaise [Unknown]
  - Temperature intolerance [Unknown]
  - Vomiting [Unknown]
  - Migraine [Unknown]
  - Suicidal ideation [Unknown]
  - Pyrexia [Recovered/Resolved]
  - Pain of skin [Unknown]

NARRATIVE: CASE EVENT DATE: 2016
